FAERS Safety Report 9476312 (Version 1)
Quarter: 2013Q3

REPORT INFORMATION
  Report Type: Report from Study
  Country: CA (occurrence: CA)
  Receive Date: 20130826
  Receipt Date: 20130826
  Transmission Date: 20140515
  Serious: Yes (Other)
  Sender: FDA-Public Use
  Company Number: CA-JNJFOC-20130809698

PATIENT
  Sex: Male
  Weight: 120 kg

DRUGS (1)
  1. REMICADE [Suspect]
     Indication: PRODUCT USED FOR UNKNOWN INDICATION
     Dosage: 52  WEEKS
     Route: 042
     Dates: end: 20130723

REACTIONS (3)
  - Metastases to spleen [Unknown]
  - Metastases to stomach [Unknown]
  - Lymphoma [Unknown]
